FAERS Safety Report 9439032 (Version 1)
Quarter: 2013Q3

REPORT INFORMATION
  Report Type: Spontaneous
  Country: GB (occurrence: GB)
  Receive Date: 20130802
  Receipt Date: 20130802
  Transmission Date: 20140515
  Serious: Yes (Other)
  Sender: FDA-Public Use
  Company Number: GB-ROCHE-1256243

PATIENT
  Sex: Male

DRUGS (2)
  1. CLONAZEPAM [Suspect]
     Indication: ANXIETY
     Dosage: DRUG STOPPED ON UNSPECFIED DATE
     Route: 065
  2. CLONAZEPAM [Suspect]
     Dosage: RESTARTED THE DRUG SINCE ONE YEAR
     Route: 065
     Dates: start: 2012

REACTIONS (4)
  - Abdominal pain [Unknown]
  - Haematochezia [Unknown]
  - Epigastric discomfort [Unknown]
  - Malaise [Unknown]
